FAERS Safety Report 25857571 (Version 1)
Quarter: 2025Q3

REPORT INFORMATION
  Report Type: Spontaneous
  Country: US (occurrence: US)
  Receive Date: 20250929
  Receipt Date: 20250929
  Transmission Date: 20251020
  Serious: Yes (Other)
  Sender: EPIC PHARM
  Company Number: US-EPICPHARMA-US-2025EPCLIT01112

PATIENT
  Age: 2 Year

DRUGS (1)
  1. OXYCODONE HYDROCHLORIDE [Suspect]
     Active Substance: OXYCODONE HYDROCHLORIDE
     Indication: Product used for unknown indication
     Route: 065

REACTIONS (2)
  - Toxicity to various agents [Unknown]
  - Overdose [Unknown]
